FAERS Safety Report 7463453-0 (Version None)
Quarter: 2011Q2

REPORT INFORMATION
  Report Type: 
  Country: None (occurrence: None)
  Receive Date: 20110506
  Receipt Date: 20110429
  Transmission Date: 20111010
  Serious: Yes (Other)
  Sender: FDA-Public Use
  Company Number: B0717588A

PATIENT
  Age: 55 Year
  Sex: Male

DRUGS (1)
  1. REQUIP [Suspect]
     Indication: PARKINSONISM
     Dosage: 2MG PER DAY
     Dates: start: 20110301, end: 20110301

REACTIONS (3)
  - PALPITATIONS [None]
  - ANGINA PECTORIS [None]
  - CARDIAC FAILURE [None]
